FAERS Safety Report 9184328 (Version 1)
Quarter: 2012Q4

REPORT INFORMATION
  Report Type: 
  Country: CH (occurrence: CH)
  Receive Date: 20121031
  Receipt Date: 20121031
  Transmission Date: 20130627
  Serious: Yes (Hospitalization)
  Sender: FDA-Public Use
  Company Number: CH-UCBSA-069841

PATIENT
  Age: 25 Year
  Sex: Male
  Weight: 45 kg

DRUGS (3)
  1. CERTOLIZUMAB [Suspect]
     Dates: start: 201101, end: 201206
  2. CIPROXIN [Suspect]
     Dates: start: 201207, end: 201207
  3. INFLAMAC [Suspect]
     Dates: start: 201207, end: 201207

REACTIONS (1)
  - Tubulointerstitial nephritis [Unknown]
